FAERS Safety Report 12318789 (Version 3)
Quarter: 2016Q3

REPORT INFORMATION
  Report Type: Spontaneous
  Country: US (occurrence: US)
  Receive Date: 20160429
  Receipt Date: 20160715
  Transmission Date: 20161109
  Serious: Yes (Other)
  Sender: FDA-Public Use
  Company Number: US-BRISTOL-MYERS SQUIBB COMPANY-BMS-2016-030871

PATIENT
  Age: 66 Year
  Sex: Male

DRUGS (4)
  1. SPRYCEL [Suspect]
     Active Substance: DASATINIB
     Dosage: 140 MG, QD
     Route: 048
     Dates: start: 20141112
  2. SPRYCEL [Suspect]
     Active Substance: DASATINIB
     Dosage: 140 MG, QD
     Route: 048
     Dates: start: 20141208, end: 20160507
  3. GABAPENTIN. [Concomitant]
     Active Substance: GABAPENTIN
     Indication: PRODUCT USED FOR UNKNOWN INDICATION
     Dosage: 300 MG, QD
     Route: 048
  4. SPRYCEL [Suspect]
     Active Substance: DASATINIB
     Indication: CHRONIC MYELOID LEUKAEMIA
     Dosage: 140 MG, QD
     Route: 048
     Dates: start: 20141209

REACTIONS (9)
  - Weight increased [Unknown]
  - Localised oedema [Unknown]
  - Dyspnoea [Unknown]
  - Weight decreased [Unknown]
  - Pulmonary oedema [Recovering/Resolving]
  - Ascites [Recovering/Resolving]
  - Mood altered [Unknown]
  - Fatigue [Unknown]
  - Pleural effusion [Recovering/Resolving]

NARRATIVE: CASE EVENT DATE: 20160218
